FAERS Safety Report 6385852-0 (Version None)
Quarter: 2009Q4

REPORT INFORMATION
  Report Type: 
  Country: None (occurrence: None)
  Receive Date: 20091002
  Receipt Date: 20090923
  Transmission Date: 20100525
  Serious: Yes (Other)
  Sender: FDA-Public Use
  Company Number: US-ASTRAZENECA-2009SE14919

PATIENT
  Age: 28 Year
  Sex: Female

DRUGS (2)
  1. SEROQUEL [Suspect]
     Indication: BIPOLAR DISORDER
     Route: 048
     Dates: start: 20090801
  2. METHADONE [Concomitant]
     Dates: start: 20090909

REACTIONS (6)
  - ANXIETY [None]
  - ENDOMETRIOSIS [None]
  - HEADACHE [None]
  - HOT FLUSH [None]
  - NAUSEA [None]
  - NERVE BLOCK [None]
